FAERS Safety Report 22938377 (Version 2)
Quarter: 2025Q2

REPORT INFORMATION
  Report Type: Spontaneous
  Country: CA (occurrence: None)
  Receive Date: 20230913
  Receipt Date: 20250618
  Transmission Date: 20250716
  Serious: Yes (Other)
  Sender: ORION
  Company Number: CA-PFIZER INC-2021621146

PATIENT
  Age: 58 Year
  Sex: Female

DRUGS (6)
  1. METHOTREXATE [Suspect]
     Active Substance: METHOTREXATE
     Indication: Product used for unknown indication
  2. METHOTREXATE [Suspect]
     Active Substance: METHOTREXATE
  3. FOLIC ACID [Concomitant]
     Active Substance: FOLIC ACID
  4. HYDROXYCHLOROQUINE [Concomitant]
     Active Substance: HYDROXYCHLOROQUINE
  5. PREDNISONE [Concomitant]
     Active Substance: PREDNISONE
  6. RINVOQ [Concomitant]
     Active Substance: UPADACITINIB

REACTIONS (2)
  - Surgery [Unknown]
  - Drug ineffective [Unknown]
